FAERS Safety Report 16825986 (Version 1)
Quarter: 2019Q3

REPORT INFORMATION
  Report Type: Spontaneous
  Country: US (occurrence: US)
  Receive Date: 20190919
  Receipt Date: 20190919
  Transmission Date: 20191005
  Serious: Yes (Other)
  Sender: FDA-Public Use
  Company Number: US-ALKEM LABORATORIES LIMITED-US-ALKEM-2019-06302

PATIENT
  Sex: Female

DRUGS (3)
  1. ANTHRACYCLINE [Suspect]
     Active Substance: UNSPECIFIED INGREDIENT
     Indication: BREAST CANCER METASTATIC
     Dosage: UNK
     Route: 065
  2. CAPECITABINE. [Suspect]
     Active Substance: CAPECITABINE
     Indication: BREAST CANCER METASTATIC
     Dosage: UNK
     Route: 065
  3. TAXANE [Suspect]
     Active Substance: UNSPECIFIED INGREDIENT
     Indication: BREAST CANCER METASTATIC
     Dosage: UNK
     Route: 065

REACTIONS (1)
  - Therapy non-responder [Unknown]
